FAERS Safety Report 8956063 (Version 2)
Quarter: 2013Q1

REPORT INFORMATION
  Report Type: Spontaneous
  Country: US (occurrence: US)
  Receive Date: 20121210
  Receipt Date: 20130125
  Transmission Date: 20140127
  Serious: Yes (Other)
  Sender: FDA-Public Use
  Company Number: US-TEVA-361850USA

PATIENT
  Age: 56 None
  Sex: Female
  Weight: 99.88 kg

DRUGS (18)
  1. PROVIGIL [Suspect]
     Indication: SLEEP APNOEA SYNDROME
     Dosage: 600 MILLIGRAM DAILY; 3 TABS PER DAY
     Route: 048
     Dates: start: 201208
  2. PROVIGIL [Suspect]
     Indication: SOMNOLENCE
     Dosage: 400 MILLIGRAM DAILY; 2 TABS PER DAY
     Route: 048
     Dates: start: 20120913
  3. SYNTHROID [Concomitant]
  4. SEROQUEL XL [Concomitant]
  5. HYDROXYZINE [Concomitant]
  6. AMBIEN [Concomitant]
  7. OMEPRAZOLE [Concomitant]
  8. ACARBOSE [Concomitant]
  9. TRADJENTA [Concomitant]
  10. BYETTA [Concomitant]
  11. XANAX [Concomitant]
  12. NORCO [Concomitant]
  13. WELCHOL [Concomitant]
  14. ADVAIR [Concomitant]
  15. PRO-AIR [Concomitant]
  16. CLONIDINE [Concomitant]
  17. NEURONTIN [Concomitant]
  18. AMLODIPINE [Concomitant]

REACTIONS (12)
  - Hypertensive crisis [Recovering/Resolving]
  - Hypertension [Recovering/Resolving]
  - Tachycardia [Not Recovered/Not Resolved]
  - Neck pain [Unknown]
  - Vision blurred [Unknown]
  - Feeling abnormal [Unknown]
  - Dizziness [Recovered/Resolved]
  - Coordination abnormal [Recovered/Resolved]
  - Headache [Recovered/Resolved]
  - Nausea [Recovered/Resolved]
  - Drug effect decreased [Unknown]
  - Syncope [Not Recovered/Not Resolved]
